FAERS Safety Report 8807338 (Version 1)
Quarter: 2012Q4

REPORT INFORMATION
  Report Type: 
  Country: US (occurrence: US)
  Receive Date: 20120925
  Receipt Date: 20120925
  Transmission Date: 20130627
  Serious: Yes (Hospitalization)
  Sender: FDA-Public Use
  Company Number: US-JUTA-2012-16231

PATIENT
  Age: 45 Year
  Sex: Male

DRUGS (3)
  1. LAMOTRIGINE [Suspect]
     Indication: EPILEPSY
     Dosage: 200 mg, bid
     Route: 065
  2. DIVALPROEX SODIUM DR [Suspect]
     Indication: EPILEPSY
     Dosage: 750 mg, bid
     Route: 065
  3. DIVALPROEX SODIUM DR [Suspect]
     Dosage: 500 mg, bid, increased to 750 3 days before admission
     Route: 065

REACTIONS (8)
  - Mental status changes [Recovered/Resolved]
  - Ataxia [Recovered/Resolved]
  - Dysarthria [Recovered/Resolved]
  - Toxicity to various agents [Recovered/Resolved]
  - Unresponsive to stimuli [Recovered/Resolved]
  - Drug interaction [Recovered/Resolved]
  - Hallucination [Recovered/Resolved]
  - Aggression [Recovered/Resolved]
